FAERS Safety Report 6306588-8 (Version None)
Quarter: 2009Q3

REPORT INFORMATION
  Report Type: 
  Country: None (occurrence: None)
  Receive Date: 20090812
  Receipt Date: 20090805
  Transmission Date: 20100115
  Serious: Yes (Other)
  Sender: FDA-Public Use
  Company Number: A0800726A

PATIENT
  Age: 23 Year
  Sex: Female

DRUGS (3)
  1. LAMICTAL [Suspect]
     Dosage: 100MCG TWICE PER DAY
     Route: 048
     Dates: start: 20081101
  2. PRENATAL [Concomitant]
  3. FOLIC ACID [Concomitant]

REACTIONS (1)
  - INFERTILITY [None]
